FAERS Safety Report 17845897 (Version 3)
Quarter: 2022Q2

REPORT INFORMATION
  Report Type: Spontaneous
  Country: BR (occurrence: BR)
  Receive Date: 20200601
  Receipt Date: 20220628
  Transmission Date: 20220721
  Serious: Yes (Hospitalization)
  Sender: FDA-Public Use
  Company Number: BR-GLAXOSMITHKLINE-BR2020AMR090139

PATIENT

DRUGS (7)
  1. CEFUROXIME [Suspect]
     Active Substance: CEFUROXIME
     Indication: Nasal septal operation
     Dosage: 1 DF, BID,500MG
     Dates: start: 20200523, end: 20200527
  2. CEFUROXIME [Suspect]
     Active Substance: CEFUROXIME
     Indication: Sinus operation
  3. CEFUROXIME [Suspect]
     Active Substance: CEFUROXIME
     Indication: Secretion discharge
  4. AMOXICILLIN [Suspect]
     Active Substance: AMOXICILLIN
     Indication: Secretion discharge
     Dosage: 1 DF, BID,875MG
  5. AMOXICILLIN [Suspect]
     Active Substance: AMOXICILLIN
     Indication: Nasal septal operation
  6. AMOXICILLIN [Suspect]
     Active Substance: AMOXICILLIN
     Indication: Sinus operation
  7. PUTAN T4 [Concomitant]
     Indication: Product used for unknown indication
     Dosage: UNK

REACTIONS (12)
  - Peripheral swelling [Not Recovered/Not Resolved]
  - Abdominal distension [Not Recovered/Not Resolved]
  - Swelling [Not Recovered/Not Resolved]
  - Swelling face [Not Recovered/Not Resolved]
  - Dyspnoea [Recovering/Resolving]
  - Tachycardia [Recovering/Resolving]
  - Throat tightness [Recovering/Resolving]
  - Condition aggravated [Recovering/Resolving]
  - Nasal mucosal erosion [Recovering/Resolving]
  - Drug hypersensitivity [Recovering/Resolving]
  - Weight increased [Recovering/Resolving]
  - Drug ineffective [Unknown]

NARRATIVE: CASE EVENT DATE: 20200501
